FAERS Safety Report 8720269 (Version 2)
Quarter: 2013Q1

REPORT INFORMATION
  Report Type: Spontaneous
  Country: GB (occurrence: None)
  Receive Date: 20120726
  Receipt Date: 20130313
  Transmission Date: 20140127
  Serious: Yes (Disabling, Other)
  Sender: FDA-Public Use
  Company Number: 2012AP002117

PATIENT
  Age: 68 Year
  Sex: Female

DRUGS (7)
  1. PERINDOPRIL ERBUMINE [Suspect]
     Indication: HYPERTENSION
     Dates: start: 20050718, end: 2010
  2. CANDESARTAN CILEXETIL [Suspect]
     Indication: HYPERTENSION
     Route: 048
     Dates: start: 20060123, end: 2010
  3. EZETIMIBE [Suspect]
     Indication: CARDIOVASCULAR EVENT PROPHYLAXIS
     Dosage: 10 MG;TAB;PO;QID
     Route: 048
     Dates: start: 20080130, end: 2010
  4. ACETYLSALICYLIC ACID (ACETYLSALICYLIC ACID) [Concomitant]
  5. BENDROFLUMETHIAZIDE (BENDROFLUMETHIAZIDE) [Concomitant]
  6. LEVOTHYROXINE SODIUM [Concomitant]
  7. URSODIOL [Concomitant]

REACTIONS (12)
  - Biliary cirrhosis primary [None]
  - Bulbar palsy [None]
  - Glossodynia [None]
  - Dry eye [None]
  - Eye pruritus [None]
  - Lip swelling [None]
  - Anosmia [None]
  - Speech disorder [None]
  - Dysphagia [None]
  - Ageusia [None]
  - Swollen tongue [None]
  - Cheilitis [None]
